FAERS Safety Report 4647916-9 (Version None)
Quarter: 2005Q2

REPORT INFORMATION
  Report Type: 
  Country: None (occurrence: None)
  Receive Date: 20050426
  Receipt Date: 20050426
  Transmission Date: 20051028
  Serious: Yes (Hospitalization)
  Sender: FDA-Public Use
  Company Number: None

PATIENT
  Sex: Female
  Weight: 6 kg

DRUGS (3)
  1. AMPHOTERICIN B [Suspect]
     Indication: FUNGAL SEPSIS
     Dosage: 6MG  QD IV
     Route: 042
     Dates: start: 20050205, end: 20050212
  2. ALBUTEROL NEB [Concomitant]
  3. GLYCERIN [Concomitant]

REACTIONS (1)
  - THROMBOCYTOPENIA [None]
